FAERS Safety Report 5171456-4 (Version None)
Quarter: 2006Q4

REPORT INFORMATION
  Report Type: 
  Country: None (occurrence: None)
  Receive Date: 20061208
  Receipt Date: 20061208
  Transmission Date: 20070319
  Serious: Yes (Hospitalization)
  Sender: FDA-Public Use
  Company Number: None

PATIENT
  Sex: Male
  Weight: 102.9665 kg

DRUGS (4)
  1. CYMBALTA [Suspect]
     Indication: DEPRESSION
     Dosage: 30MG ONCE DAILY PO
     Route: 048
     Dates: start: 20061101, end: 20061202
  2. SEROQUEL [Concomitant]
  3. CLONAZEPAM [Concomitant]
  4. TYLENOL [Concomitant]

REACTIONS (3)
  - CONDITION AGGRAVATED [None]
  - DEPRESSION [None]
  - HEPATITIS C [None]
